FAERS Safety Report 14245344 (Version 1)
Quarter: 2017Q4

REPORT INFORMATION
  Report Type: Spontaneous
  Country: US (occurrence: US)
  Receive Date: 20171202
  Receipt Date: 20171202
  Transmission Date: 20180321
  Serious: No
  Sender: FDA-Public Use
  Company Number: US-ENDO PHARMACEUTICALS INC-2017-005350

PATIENT
  Age: 62 Year
  Sex: Male
  Weight: 79.37 kg

DRUGS (8)
  1. XIAFLEX [Suspect]
     Active Substance: COLLAGENASE CLOSTRIDIUM HISTOLYTICUM
     Dosage: UNK, 1ST INJECTION, CYCLE 1, SINGLE
     Route: 026
     Dates: start: 20170823
  2. ASPIRIN EC [Suspect]
     Active Substance: ASPIRIN
     Indication: ANTICOAGULANT THERAPY
     Dosage: 325 MG, DAILY
     Route: 048
  3. TURMERIC                           /01079602/ [Suspect]
     Active Substance: HERBALS\TURMERIC
     Indication: ANTIINFLAMMATORY THERAPY
     Dosage: 1000 MG, BID
     Route: 065
  4. TURMERIC                           /01079602/ [Suspect]
     Active Substance: HERBALS\TURMERIC
     Indication: ANTICOAGULANT THERAPY
  5. XIAFLEX [Suspect]
     Active Substance: COLLAGENASE CLOSTRIDIUM HISTOLYTICUM
     Indication: PEYRONIE^S DISEASE
     Dosage: UNK, 1ST INJECTION, CYCLE 2, SINGLE
     Route: 026
     Dates: start: 20171002
  6. XIAFLEX [Suspect]
     Active Substance: COLLAGENASE CLOSTRIDIUM HISTOLYTICUM
     Dosage: UNK, 2ND INJECTION, CYCLE 1, SINGLE
     Route: 026
     Dates: start: 20170825
  7. CRESTOR [Concomitant]
     Active Substance: ROSUVASTATIN CALCIUM
     Indication: BLOOD CHOLESTEROL INCREASED
  8. VITAMIN E                          /00110501/ [Suspect]
     Active Substance: TOCOPHEROL
     Indication: ROUTINE HEALTH MAINTENANCE
     Dosage: 1000 MG, DAILY
     Route: 065

REACTIONS (5)
  - Penile swelling [Recovering/Resolving]
  - Injection site bruising [Recovering/Resolving]
  - Penile pain [Recovered/Resolved]
  - Drug interaction [Unknown]
  - Inappropriate schedule of drug administration [Unknown]

NARRATIVE: CASE EVENT DATE: 20171002
